FAERS Safety Report 5131734-1 (Version None)
Quarter: 2006Q4

REPORT INFORMATION
  Report Type: 
  Country: None (occurrence: None)
  Receive Date: 20061016
  Receipt Date: 20060926
  Transmission Date: 20070319
  Serious: Yes (Hospitalization)
  Sender: FDA-Public Use
  Company Number: CA200610000184

PATIENT
  Age: 11 Year
  Sex: Male
  Weight: 20.2 kg

DRUGS (7)
  1. SOMATROPIN (SOMATROPIN) [Suspect]
     Dosage: UNK, UNK, UNK
  2. SYNTHROID [Concomitant]
  3. SEPTRA [Concomitant]
  4. PREVACID [Concomitant]
  5. RITALIN   /UNK/(METHYLPHENIDATE HYDROCHLORIDE) [Concomitant]
  6. CIPRO [Concomitant]
  7. OXYBUTYNIN CHLORIDE [Concomitant]

REACTIONS (1)
  - SCOLIOSIS [None]
